FAERS Safety Report 7075103-6 (Version None)
Quarter: 2010Q4

REPORT INFORMATION
  Report Type: 
  Country: None (occurrence: None)
  Receive Date: 20101029
  Receipt Date: 20100322
  Transmission Date: 20110411
  Serious: No
  Sender: FDA-Public Use
  Company Number: US-WYE-H14063810

PATIENT
  Age: 21 Year
  Sex: Female
  Weight: 69.01 kg

DRUGS (1)
  1. ALAVERT [Suspect]
     Indication: HYPERSENSITIVITY
     Route: 048
     Dates: start: 20100310, end: 20100310

REACTIONS (2)
  - DRUG INEFFECTIVE [None]
  - NASAL CONGESTION [None]
